FAERS Safety Report 8616716-7 (Version None)
Quarter: 2012Q3

REPORT INFORMATION
  Report Type: 
  Country: None (occurrence: None)
  Receive Date: 20120823
  Receipt Date: 20120802
  Transmission Date: 20120928
  Serious: No
  Sender: FDA-Public Use
  Company Number: US-009507513-1208USA004672

PATIENT

DRUGS (1)
  1. COSOPT [Suspect]
     Indication: INTRAOCULAR PRESSURE TEST ABNORMAL
     Dosage: 2 GTT, BID
     Route: 047

REACTIONS (1)
  - OCULAR HYPERAEMIA [None]
